FAERS Safety Report 21180159 (Version 1)
Quarter: 2022Q3

REPORT INFORMATION
  Report Type: Spontaneous
  Country: CN (occurrence: CN)
  Receive Date: 20220806
  Receipt Date: 20220806
  Transmission Date: 20221026
  Serious: Yes (Other)
  Sender: FDA-Public Use
  Company Number: CN-Accord-272325

PATIENT
  Sex: Female
  Weight: 3.04 kg

DRUGS (4)
  1. CISPLATIN [Suspect]
     Active Substance: CISPLATIN
     Indication: Hepatoblastoma
  2. FLUOROURACIL [Suspect]
     Active Substance: FLUOROURACIL
     Indication: Hepatoblastoma
  3. VINCRISTINE [Suspect]
     Active Substance: VINCRISTINE
     Indication: Hepatoblastoma
  4. DOXORUBICIN [Suspect]
     Active Substance: DOXORUBICIN
     Indication: Hepatoblastoma

REACTIONS (2)
  - Anaemia neonatal [Recovered/Resolved]
  - Granulocytopenia neonatal [Recovered/Resolved]
